FAERS Safety Report 14754590 (Version 1)
Quarter: 2018Q2

REPORT INFORMATION
  Report Type: Spontaneous
  Country: TR (occurrence: TR)
  Receive Date: 20180413
  Receipt Date: 20180413
  Transmission Date: 20180711
  Serious: Yes (Other)
  Sender: FDA-Public Use
  Company Number: TR-DENTSPLY-2018SCDP000046

PATIENT
  Age: 44 Year
  Sex: Female

DRUGS (1)
  1. XYLOCAINE DENTAL (LIDOCAINE HCL INJECTION), USP 2% [Suspect]
     Active Substance: EPINEPHRINE\LIDOCAINE
     Indication: LOCAL ANAESTHESIA
     Dosage: 0.1 CC
     Route: 058

REACTIONS (1)
  - Laryngeal oedema [Unknown]
